FAERS Safety Report 10021921 (Version 1)
Quarter: 2014Q1

REPORT INFORMATION
  Report Type: Spontaneous
  Country: US (occurrence: US)
  Receive Date: 20140319
  Receipt Date: 20140319
  Transmission Date: 20141002
  Serious: No
  Sender: FDA-Public Use
  Company Number: US-009507513-1403USA008515

PATIENT
  Sex: Female

DRUGS (2)
  1. CORICIDIN HBP COLD AND FLU [Suspect]
     Indication: THROAT IRRITATION
     Dosage: UNK, UNKNOWN
     Route: 048
  2. CORICIDIN HBP COLD AND FLU [Suspect]
     Indication: COUGH

REACTIONS (3)
  - Somnolence [Unknown]
  - Off label use [Unknown]
  - Product packaging issue [Unknown]
